FAERS Safety Report 18567154 (Version 1)
Quarter: 2020Q4

REPORT INFORMATION
  Report Type: Spontaneous
  Country: US (occurrence: US)
  Receive Date: 20201201
  Receipt Date: 20201201
  Transmission Date: 20210114
  Serious: No
  Sender: FDA-Public Use
  Company Number: US-BAYER-2020-251212

PATIENT
  Age: 80 Year
  Sex: Female
  Weight: 63.9 kg

DRUGS (13)
  1. ROSUVASTATIN. [Concomitant]
     Active Substance: ROSUVASTATIN
  2. CHLORTHALIDONE. [Concomitant]
     Active Substance: CHLORTHALIDONE
  3. LISINOPRIL. [Concomitant]
     Active Substance: LISINOPRIL
  4. KCL [Concomitant]
     Active Substance: POTASSIUM CHLORIDE
  5. KORLYM [Suspect]
     Active Substance: MIFEPRISTONE
     Indication: CUSHING^S SYNDROME
     Dosage: 300 MG, QD
     Route: 048
     Dates: start: 20200929
  6. ALENDRONATE [Concomitant]
     Active Substance: ALENDRONATE SODIUM
  7. SPIRONOLACTON [Concomitant]
     Active Substance: SPIRONOLACTONE
  8. VITAMIN D3 [Concomitant]
     Active Substance: CHOLECALCIFEROL
  9. CIPRO [Suspect]
     Active Substance: CIPROFLOXACIN HYDROCHLORIDE
     Indication: URINARY TRACT INFECTION
     Dosage: UNK
     Dates: start: 20200928, end: 20201001
  10. KORLYM [Suspect]
     Active Substance: MIFEPRISTONE
     Indication: CUSHING^S SYNDROME
     Dosage: 300 MG, QD
     Route: 048
     Dates: start: 20200717, end: 20200730
  11. KORLYM [Suspect]
     Active Substance: MIFEPRISTONE
     Indication: CUSHING^S SYNDROME
     Dosage: 600 MG, QD
     Route: 048
     Dates: start: 20200731, end: 20200812
  12. PARACETAMOL [Concomitant]
     Active Substance: ACETAMINOPHEN
  13. SERTRALINE [Concomitant]
     Active Substance: SERTRALINE HYDROCHLORIDE

REACTIONS (4)
  - Diarrhoea [Recovered/Resolved]
  - Blood pressure increased [Recovering/Resolving]
  - Vomiting [Recovered/Resolved]
  - Headache [None]

NARRATIVE: CASE EVENT DATE: 20200930
